FAERS Safety Report 4660390-1 (Version None)
Quarter: 2005Q2

REPORT INFORMATION
  Report Type: 
  Country: None (occurrence: None)
  Receive Date: 20050512
  Receipt Date: 20050502
  Transmission Date: 20051028
  Serious: Yes (Death)
  Sender: FDA-Public Use
  Company Number: US-SANOFI-SYNTHELABO-A03200501302

PATIENT
  Age: 55 Year
  Sex: Male

DRUGS (3)
  1. ELOXATIN [Suspect]
     Indication: NEOPLASM MALIGNANT
     Route: 042
  2. FLUOROURACIL [Suspect]
     Indication: NEOPLASM MALIGNANT
     Route: 042
  3. LEUCOVORIN CALCIUM [Concomitant]
     Indication: NEOPLASM MALIGNANT
     Route: 042

REACTIONS (2)
  - CARDIOMEGALY [None]
  - DEATH [None]
